FAERS Safety Report 8220759-5 (Version None)
Quarter: 2012Q1

REPORT INFORMATION
  Report Type: 
  Country: None (occurrence: None)
  Receive Date: 20120320
  Receipt Date: 20120312
  Transmission Date: 20120608
  Serious: No
  Sender: FDA-Public Use
  Company Number: US-BAYER-2012-026199

PATIENT
  Age: 84 Year
  Sex: Female
  Weight: 58 kg

DRUGS (1)
  1. ALEVE (CAPLET) [Suspect]
     Indication: ARTHRALGIA
     Dosage: 1 DF, QD
     Route: 048
     Dates: start: 20120101

REACTIONS (1)
  - ARTHRALGIA [None]
